FAERS Safety Report 15074934 (Version 1)
Quarter: 2018Q2

REPORT INFORMATION
  Report Type: Report from Study
  Country: US (occurrence: US)
  Receive Date: 20180627
  Receipt Date: 20180627
  Transmission Date: 20180711
  Serious: No
  Sender: FDA-Public Use
  Company Number: US-SAOL THERAPEUTICS-2017SAO01642

PATIENT
  Age: 52 Year
  Sex: Male

DRUGS (2)
  1. BACLOFEN. [Suspect]
     Active Substance: BACLOFEN
     Dosage: 698.4 ?G, \DAY
     Route: 037
     Dates: start: 20160927
  2. MORPHINE [Suspect]
     Active Substance: MORPHINE
     Dosage: 2.0255 MG, \DAY
     Route: 037
     Dates: start: 20160927

REACTIONS (1)
  - Implant site pain [Recovered/Resolved]

NARRATIVE: CASE EVENT DATE: 20170316
